FAERS Safety Report 7045589-1 (Version None)
Quarter: 2010Q4

REPORT INFORMATION
  Report Type: 
  Country: None (occurrence: None)
  Receive Date: 20101014
  Receipt Date: 20101005
  Transmission Date: 20110411
  Serious: Yes (Other)
  Sender: FDA-Public Use
  Company Number: US-ROCHE-731572

PATIENT

DRUGS (1)
  1. BEVACIZUMAB [Suspect]
     Indication: BRAIN NEOPLASM MALIGNANT
     Route: 065

REACTIONS (14)
  - ALANINE AMINOTRANSFERASE INCREASED [None]
  - ANAEMIA [None]
  - CONSTIPATION [None]
  - CONVULSION [None]
  - DIARRHOEA [None]
  - HAEMORRHAGE [None]
  - HYPERTENSION [None]
  - IMPAIRED HEALING [None]
  - INFECTION [None]
  - NAUSEA [None]
  - NEUTROPENIA [None]
  - PROTEINURIA [None]
  - THROMBOCYTOPENIA [None]
  - VOMITING [None]
